FAERS Safety Report 8722038 (Version 3)
Quarter: 2013Q2

REPORT INFORMATION
  Report Type: Spontaneous
  Country: BR (occurrence: BR)
  Receive Date: 20120814
  Receipt Date: 20130411
  Transmission Date: 20140414
  Serious: Yes (Death, Other)
  Sender: FDA-Public Use
  Company Number: BR-PFIZER INC-2012193527

PATIENT
  Age: 61 Year
  Sex: Female

DRUGS (3)
  1. SUTENT [Suspect]
     Indication: GASTROINTESTINAL STROMAL TUMOUR
     Dosage: 50 MG, 1X/DAY, (CYCLE 4 TO 2)
     Route: 048
     Dates: start: 20120710
  2. OMEPRAZOL [Concomitant]
     Dosage: UNK
  3. HYGROTON [Concomitant]
     Dosage: UNK

REACTIONS (7)
  - Death [Fatal]
  - Vaginal haemorrhage [Unknown]
  - Blood pressure increased [Unknown]
  - Decreased appetite [Unknown]
  - Weight decreased [Unknown]
  - Asthenia [Unknown]
  - Abdominal pain upper [Unknown]
